FAERS Safety Report 7626902-0 (Version None)
Quarter: 2011Q3

REPORT INFORMATION
  Report Type: 
  Country: None (occurrence: None)
  Receive Date: 20110721
  Receipt Date: 20110713
  Transmission Date: 20111222
  Serious: Yes (Hospitalization)
  Sender: FDA-Public Use
  Company Number: US-BAYER-201039900NA

PATIENT
  Age: 24 Year
  Sex: Female
  Weight: 79.819 kg

DRUGS (4)
  1. IBUPROFEN [Concomitant]
  2. ACETAMINOPHEN [Concomitant]
  3. YAZ [Suspect]
     Dosage: UNK
     Route: 048
     Dates: start: 20060701, end: 20061201
  4. ALBUTEROL SULFATE AUTOHALER [Concomitant]

REACTIONS (1)
  - DEEP VEIN THROMBOSIS [None]
